FAERS Safety Report 7503321-9 (Version None)
Quarter: 2011Q2

REPORT INFORMATION
  Report Type: 
  Country: None (occurrence: None)
  Receive Date: 20110525
  Receipt Date: 20110518
  Transmission Date: 20111010
  Serious: Yes (Congenital Anomaly, Other)
  Sender: FDA-Public Use
  Company Number: PHHO2010ZM18538

PATIENT
  Sex: Female
  Weight: 2.87 kg

DRUGS (3)
  1. AMOXICILLIN [Concomitant]
  2. CELESTONE [Concomitant]
  3. COARTEM [Suspect]
     Indication: MALARIA
     Dosage: UNK
     Route: 064

REACTIONS (5)
  - STRIDOR [None]
  - SWELLING FACE [None]
  - TALIPES [None]
  - LABIA ENLARGED [None]
  - DRUG EXPOSURE DURING PREGNANCY [None]
